FAERS Safety Report 5405902-5 (Version None)
Quarter: 2007Q3

REPORT INFORMATION
  Report Type: 
  Country: None (occurrence: None)
  Receive Date: 20070806
  Receipt Date: 20070802
  Transmission Date: 20080115
  Serious: Yes (Death)
  Sender: FDA-Public Use
  Company Number: JP-AVENTIS-200712050JP

PATIENT

DRUGS (1)
  1. TAXOTERE [Suspect]
     Dates: start: 20070601

REACTIONS (1)
  - INTERSTITIAL LUNG DISEASE [None]
